FAERS Safety Report 9872127 (Version 2)
Quarter: 2014Q1

REPORT INFORMATION
  Report Type: Spontaneous
  Country: US (occurrence: US)
  Receive Date: 20140205
  Receipt Date: 20140205
  Transmission Date: 20141002
  Serious: No
  Sender: FDA-Public Use
  Company Number: US-ALLERGAN-1306863US

PATIENT
  Sex: Female

DRUGS (5)
  1. BOTOX COSMETIC [Suspect]
     Indication: SKIN WRINKLING
     Dosage: 70-80 UNITS FROM TWO BOTTLES, SINGLE
     Dates: start: 20130501, end: 20130529
  2. BOTOX COSMETIC [Suspect]
     Dosage: 70-80 UNITS FROM TWO BOTTLES, SINGLE
     Dates: start: 20130501, end: 20130501
  3. VITAMIN D                          /00107901/ [Concomitant]
     Indication: SUPPLEMENTATION THERAPY
     Dosage: UNK
  4. CALCIUM [Concomitant]
     Indication: SUPPLEMENTATION THERAPY
     Dosage: UNK
  5. KLONOPIN [Concomitant]
     Indication: PRODUCT USED FOR UNKNOWN INDICATION
     Dosage: UNK

REACTIONS (3)
  - Drug administered at inappropriate site [Unknown]
  - Dysphagia [Recovered/Resolved]
  - Drug ineffective [Unknown]
